FAERS Safety Report 21972565 (Version 1)
Quarter: 2023Q1

REPORT INFORMATION
  Report Type: Spontaneous
  Country: US (occurrence: None)
  Receive Date: 20230208
  Receipt Date: 20230208
  Transmission Date: 20230418
  Serious: Yes (Hospitalization, Disabling, Other)
  Sender: FDA-Public Use
  Company Number: None

PATIENT
  Age: 63 Year
  Sex: Female

DRUGS (1)
  1. WIXELA INHUB [Suspect]
     Active Substance: FLUTICASONE PROPIONATE\SALMETEROL XINAFOATE
     Indication: Asthma
     Dosage: FREQUENCY : DAILY;?
     Route: 055

REACTIONS (12)
  - Headache [None]
  - Dehydration [None]
  - Anxiety [None]
  - Dizziness [None]
  - Sleep disorder [None]
  - Agitation [None]
  - Heart rate increased [None]
  - Cardiac disorder [None]
  - Atrial fibrillation [None]
  - Asthma [None]
  - Suspected product contamination [None]
  - Foreign body in throat [None]

NARRATIVE: CASE EVENT DATE: 20210222
